FAERS Safety Report 13497700 (Version 6)
Quarter: 2017Q3

REPORT INFORMATION
  Report Type: Report from Study
  Country: US (occurrence: US)
  Receive Date: 20170428
  Receipt Date: 20170712
  Transmission Date: 20171127
  Serious: Yes (Other)
  Sender: FDA-Public Use
  Company Number: US-BAYER-2017-076745

PATIENT
  Age: 56 Year
  Sex: Male

DRUGS (4)
  1. STIVARGA [Suspect]
     Active Substance: REGORAFENIB
     Indication: COLORECTAL CANCER
     Dosage: 160 MG DAILY
     Route: 048
     Dates: start: 2017, end: 2017
  2. STIVARGA [Suspect]
     Active Substance: REGORAFENIB
     Indication: COLORECTAL CANCER
     Dosage: 160 MG, QD
     Route: 048
     Dates: start: 20170414, end: 2017
  3. STIVARGA [Suspect]
     Active Substance: REGORAFENIB
     Indication: COLORECTAL CANCER
     Dosage: 120 MGH DAILY
     Route: 048
     Dates: start: 2017, end: 20170630
  4. STIVARGA [Suspect]
     Active Substance: REGORAFENIB
     Indication: COLORECTAL CANCER
     Dosage: UNK
     Dates: start: 2017, end: 2017

REACTIONS (16)
  - Iron deficiency anaemia [None]
  - Diarrhoea [None]
  - Adverse drug reaction [None]
  - Pain in extremity [None]
  - Drug ineffective [None]
  - Rash pruritic [None]
  - Anaemia [None]
  - Neuropathy peripheral [Not Recovered/Not Resolved]
  - Renal function test abnormal [None]
  - Tumour marker increased [None]
  - Plantar erythema [Not Recovered/Not Resolved]
  - Fatigue [None]
  - Dysphonia [Not Recovered/Not Resolved]
  - Neoplasm [Not Recovered/Not Resolved]
  - Contusion [None]
  - Drug dose omission [None]

NARRATIVE: CASE EVENT DATE: 2017
